FAERS Safety Report 5509787-8 (Version None)
Quarter: 2007Q4

REPORT INFORMATION
  Report Type: 
  Country: None (occurrence: None)
  Receive Date: 20071108
  Receipt Date: 20071029
  Transmission Date: 20080405
  Serious: Yes (Other)
  Sender: FDA-Public Use
  Company Number: PHBS2007BR18203

PATIENT
  Age: 50 Year
  Sex: Male
  Weight: 67 kg

DRUGS (2)
  1. COMBAREN T30087+FCTAB [Suspect]
     Indication: OEDEMA PERIPHERAL
     Dosage: 50 MG, Q8H
     Route: 048
     Dates: start: 20000123
  2. DIPYRONE [Concomitant]
     Indication: PAIN
     Dosage: UNK, ONCE/SINGLE
     Dates: start: 20071028

REACTIONS (6)
  - FEELING ABNORMAL [None]
  - GAIT DISTURBANCE [None]
  - JOINT SWELLING [None]
  - PAIN [None]
  - THROMBOSIS [None]
  - VOMITING [None]
